FAERS Safety Report 21655901 (Version 1)
Quarter: 2022Q4

REPORT INFORMATION
  Report Type: Spontaneous
  Country: US (occurrence: US)
  Receive Date: 20221129
  Receipt Date: 20221129
  Transmission Date: 20230113
  Serious: No
  Sender: FDA-Public Use
  Company Number: None

PATIENT
  Age: 6 Decade
  Sex: Female

DRUGS (2)
  1. GABAPENTIN [Suspect]
     Active Substance: GABAPENTIN
     Indication: Coccydynia
     Dosage: 300 MILLIGRAM, QID
     Route: 065
  2. MEXILETINE [Suspect]
     Active Substance: MEXILETINE
     Indication: Coccydynia
     Dosage: 150 MILLIGRAM, TID
     Route: 065

REACTIONS (2)
  - Somnolence [Unknown]
  - Weight increased [Unknown]
